FAERS Safety Report 11400486 (Version 1)
Quarter: 2015Q3

REPORT INFORMATION
  Report Type: Spontaneous
  Country: IE (occurrence: None)
  Receive Date: 20150819
  Receipt Date: 20150819
  Transmission Date: 20151125
  Serious: Yes (Life-Threatening, Hospitalization, Other)
  Sender: FDA-Public Use
  Company Number: 2015FE02566

PATIENT
  Age: 35 Year
  Sex: Female

DRUGS (1)
  1. PROPESS (DINOPROSTONE) VAGINAL DELIVERY SYSTEM, 10 MG [Suspect]
     Active Substance: DINOPROSTONE
     Indication: LABOUR INDUCTION
     Dosage: 24 HOURS
     Route: 067
     Dates: start: 20150623, end: 20150623

REACTIONS (4)
  - Disseminated intravascular coagulation [None]
  - Renal failure [None]
  - Uterine hyperstimulation [None]
  - Postpartum haemorrhage [None]

NARRATIVE: CASE EVENT DATE: 20150623
